FAERS Safety Report 13784717 (Version 1)
Quarter: 2017Q3

REPORT INFORMATION
  Report Type: Spontaneous
  Country: US (occurrence: US)
  Receive Date: 20170724
  Receipt Date: 20170724
  Transmission Date: 20171127
  Serious: Yes (Hospitalization)
  Sender: FDA-Public Use
  Company Number: US-IMPAX LABORATORIES, INC-2017-IPXL-01065

PATIENT
  Age: 74 Year
  Sex: Male
  Weight: 90 kg

DRUGS (1)
  1. RYTARY [Suspect]
     Active Substance: CARBIDOPA\LEVODOPA
     Indication: MOVEMENT DISORDER
     Dosage: 48.75/195 MG, 4 CAPSULES, 4/DAY
     Route: 065
     Dates: start: 20170407, end: 20170415

REACTIONS (5)
  - Anxiety [Not Recovered/Not Resolved]
  - Hallucination [Not Recovered/Not Resolved]
  - Agitation [Not Recovered/Not Resolved]
  - Prescribed overdose [Unknown]
  - Confusional state [Not Recovered/Not Resolved]

NARRATIVE: CASE EVENT DATE: 201704
